FAERS Safety Report 6608894-6 (Version None)
Quarter: 2010Q1

REPORT INFORMATION
  Report Type: 
  Country: None (occurrence: None)
  Receive Date: 20100226
  Receipt Date: 20100226
  Transmission Date: 20100710
  Serious: Yes (Life-Threatening, Hospitalization)
  Sender: FDA-Public Use
  Company Number: None

PATIENT
  Age: 65 Year
  Sex: Female
  Weight: 66.7 kg

DRUGS (1)
  1. NITROFURANTOIN [Suspect]
     Dosage: UNK UNK ORAL 047
     Route: 048

REACTIONS (5)
  - COAGULOPATHY [None]
  - JAUNDICE [None]
  - LIVER TRANSPLANT [None]
  - MALAISE [None]
  - MENTAL STATUS CHANGES [None]
